FAERS Safety Report 5458047-2 (Version None)
Quarter: 2007Q3

REPORT INFORMATION
  Report Type: 
  Country: None (occurrence: None)
  Receive Date: 20070917
  Receipt Date: 20070905
  Transmission Date: 20080115
  Serious: Yes (Other)
  Sender: FDA-Public Use
  Company Number: 2007-03025

PATIENT
  Age: 71 Year
  Sex: Female
  Weight: 55 kg

DRUGS (8)
  1. VELCADE [Suspect]
     Indication: MULTIPLE MYELOMA
     Dosage: 2.00 MG, INTRAVENOUS
     Route: 042
     Dates: start: 20070626, end: 20070727
  2. RANTIDINE HYDROCHLORIDE (RANTIDINE HYDROCHLORIDE) [Concomitant]
  3. REBAMIPIDE (REBAMIPIDE) [Concomitant]
  4. PANTETHINE (PANTETHINE) [Concomitant]
  5. MAGNESIUM OXIDE (MAGNESIUM OXIDE) [Concomitant]
  6. PAROXETINE HCL [Concomitant]
  7. AMOXICILLIN W/CLAVULANATE POTASSIUM (AMOXICILLIN, CLAVULANATE POTASSIU [Concomitant]
  8. KAKKON-TO (HERBAL EXTRACTS NOS) [Concomitant]

REACTIONS (10)
  - FOLLICULITIS [None]
  - HYPOTENSION [None]
  - NASOPHARYNGITIS [None]
  - NEUTROPHIL COUNT DECREASED [None]
  - ORAL HERPES [None]
  - PLATELET COUNT DECREASED [None]
  - PYREXIA [None]
  - TOXIC SKIN ERUPTION [None]
  - WHITE BLOOD CELL COUNT DECREASED [None]
  - YAWNING [None]
